FAERS Safety Report 5022003-9 (Version None)
Quarter: 2006Q2

REPORT INFORMATION
  Report Type: 
  Country: None (occurrence: None)
  Receive Date: 20060605
  Receipt Date: 20060522
  Transmission Date: 20061013
  Serious: Yes (Life-Threatening, Hospitalization)
  Sender: FDA-Public Use
  Company Number: 2006067235

PATIENT
  Age: 75 Year
  Sex: Male

DRUGS (3)
  1. SULPERAZON                      (SULBACTAM, CEFOPERAZONE) [Suspect]
     Indication: BACTERIAL INFECTION
     Dosage: INTRAVENOUS
     Route: 042
     Dates: start: 20060522, end: 20060522
  2. SAXIZON                (HYDROCORTISONE SODIUM SUCCINATE) [Concomitant]
  3. AMINOPHYLLIN [Concomitant]

REACTIONS (5)
  - ANAPHYLACTIC SHOCK [None]
  - ASTHMA [None]
  - LOSS OF CONSCIOUSNESS [None]
  - NASOPHARYNGITIS [None]
  - RESPIRATORY FAILURE [None]
